FAERS Safety Report 7358325-6 (Version None)
Quarter: 2011Q1

REPORT INFORMATION
  Report Type: 
  Country: None (occurrence: None)
  Receive Date: 20110317
  Receipt Date: 20110310
  Transmission Date: 20110831
  Serious: Yes (Life-Threatening, Hospitalization)
  Sender: FDA-Public Use
  Company Number: GB-ALLERGAN-1103438US

PATIENT

DRUGS (1)
  1. OZURDEX [Suspect]
     Indication: PRODUCT USED FOR UNKNOWN INDICATION
     Dosage: UNK
     Route: 031
     Dates: start: 20110309, end: 20110309

REACTIONS (5)
  - PROCEDURAL PAIN [None]
  - ANGINA PECTORIS [None]
  - CIRCULATORY COLLAPSE [None]
  - CARDIAC ARREST [None]
  - MYOCARDIAL INFARCTION [None]
